FAERS Safety Report 22589907 (Version 2)
Quarter: 2023Q2

REPORT INFORMATION
  Report Type: Spontaneous
  Country: US (occurrence: US)
  Receive Date: 20230612
  Receipt Date: 20230622
  Transmission Date: 20230721
  Serious: No
  Sender: FDA-Public Use
  Company Number: US-SA-SAC20230609001298

PATIENT
  Sex: Male

DRUGS (14)
  1. DUPIXENT [Suspect]
     Active Substance: DUPILUMAB
     Indication: Asthma
     Dosage: 600 MG, 1X
     Route: 058
  2. DUPIXENT [Suspect]
     Active Substance: DUPILUMAB
     Dosage: 300 MG, QOW
     Route: 058
  3. DUPIXENT [Suspect]
     Active Substance: DUPILUMAB
     Indication: Asthma
     Dosage: 200 MG, QOW
     Route: 058
     Dates: start: 20211230
  4. CETIRIZINE [Concomitant]
     Active Substance: CETIRIZINE HYDROCHLORIDE
  5. CETIRIZINE [Concomitant]
     Active Substance: CETIRIZINE HYDROCHLORIDE
  6. CLOBETASOL [Concomitant]
     Active Substance: CLOBETASOL
  7. CLOBETASOL [Concomitant]
     Active Substance: CLOBETASOL
  8. EUCRISA [Concomitant]
     Active Substance: CRISABOROLE
  9. EUCRISA [Concomitant]
     Active Substance: CRISABOROLE
  10. MOMETASONE [Concomitant]
     Active Substance: MOMETASONE
  11. MOMETASONE [Concomitant]
     Active Substance: MOMETASONE
  12. PREDNISONE [Concomitant]
     Active Substance: PREDNISONE
  13. PREDNISONE [Concomitant]
     Active Substance: PREDNISONE
  14. TRIAMCINOLONE [Concomitant]
     Active Substance: TRIAMCINOLONE

REACTIONS (4)
  - Stress [Unknown]
  - Product dose omission in error [Unknown]
  - Infection [Unknown]
  - Sleep disorder [Unknown]
